FAERS Safety Report 10470675 (Version 2)
Quarter: 2014Q3

REPORT INFORMATION
  Report Type: Spontaneous
  Country: US (occurrence: US)
  Receive Date: 20140923
  Receipt Date: 20140923
  Transmission Date: 20150326
  Serious: Yes (Hospitalization)
  Sender: FDA-Public Use
  Company Number: US-GLAXOSMITHKLINE-A0853106A

PATIENT
  Sex: Female

DRUGS (1)
  1. AVANDIA [Suspect]
     Active Substance: ROSIGLITAZONE MALEATE
     Indication: DIABETES MELLITUS
     Dosage: 4MG PER DAY
     Route: 048
     Dates: start: 2002, end: 2009

REACTIONS (10)
  - Cardiac failure congestive [Not Recovered/Not Resolved]
  - Arrhythmia [Unknown]
  - Cerebrovascular disorder [Unknown]
  - Multiple sclerosis relapse [Unknown]
  - Addison^s disease [Unknown]
  - Transient ischaemic attack [Unknown]
  - Thyroid disorder [Unknown]
  - Mitral valve disease [Unknown]
  - Basedow^s disease [Unknown]
  - Asthma [Unknown]
